FAERS Safety Report 5266243-2 (Version None)
Quarter: 2007Q1

REPORT INFORMATION
  Report Type: 
  Country: None (occurrence: None)
  Receive Date: 20070315
  Receipt Date: 20070313
  Transmission Date: 20070707
  Serious: Yes (Life-Threatening)
  Sender: FDA-Public Use
  Company Number: FR-GLAXOSMITHKLINE-B0461725A

PATIENT
  Age: 40 Year
  Sex: Male

DRUGS (1)
  1. CEFUROXIME [Suspect]
     Indication: NASOPHARYNGITIS
     Dosage: 500MG SINGLE DOSE
     Route: 048
     Dates: start: 20061101, end: 20061101

REACTIONS (5)
  - ANAPHYLACTIC SHOCK [None]
  - LOSS OF CONSCIOUSNESS [None]
  - MALAISE [None]
  - PRURITUS GENERALISED [None]
  - URTICARIA GENERALISED [None]
